FAERS Safety Report 23358113 (Version 2)
Quarter: 2024Q1

REPORT INFORMATION
  Report Type: Spontaneous
  Country: US (occurrence: US)
  Receive Date: 20240102
  Receipt Date: 20240302
  Transmission Date: 20240409
  Serious: Yes (Other)
  Sender: FDA-Public Use
  Company Number: US-TEVA-VS-3138661

PATIENT
  Age: 36 Year
  Sex: Female

DRUGS (20)
  1. IBUPROFEN [Suspect]
     Active Substance: IBUPROFEN
     Indication: Migraine
     Route: 065
     Dates: start: 2023
  2. IBUPROFEN [Suspect]
     Active Substance: IBUPROFEN
     Route: 065
  3. DIPHENHYDRAMINE [Suspect]
     Active Substance: DIPHENHYDRAMINE
     Indication: Migraine
     Route: 065
     Dates: start: 2023
  4. RIZATRIPTAN [Suspect]
     Active Substance: RIZATRIPTAN
     Indication: Migraine
     Route: 065
  5. RIZATRIPTAN [Suspect]
     Active Substance: RIZATRIPTAN
     Indication: Migraine
     Route: 065
     Dates: start: 202301
  6. NARATRIPTAN [Suspect]
     Active Substance: NARATRIPTAN HYDROCHLORIDE
     Indication: Migraine
     Route: 065
     Dates: start: 2023
  7. PREDNISONE [Suspect]
     Active Substance: PREDNISONE
     Indication: Migraine
     Dosage: TWO 3-DAY COURSES
     Route: 065
     Dates: start: 202207
  8. PREDNISONE [Suspect]
     Active Substance: PREDNISONE
     Indication: Migraine
     Dosage: ONE 5-DAY COURSE
     Route: 065
     Dates: end: 202211
  9. KETOROLAC [Suspect]
     Active Substance: KETOROLAC TROMETHAMINE
     Indication: Migraine
     Route: 065
     Dates: start: 202301
  10. METHYLPREDNISOLONE [Suspect]
     Active Substance: METHYLPREDNISOLONE
     Indication: Migraine
     Route: 065
  11. DEXAMETHASONE [Suspect]
     Active Substance: DEXAMETHASONE
     Indication: Migraine
     Route: 065
     Dates: start: 202301
  12. DEXAMETHASONE [Suspect]
     Active Substance: DEXAMETHASONE
     Indication: Migraine
     Route: 065
     Dates: start: 202301
  13. DEXAMETHASONE [Suspect]
     Active Substance: DEXAMETHASONE
     Indication: Migraine
     Route: 065
  14. DEXAMETHASONE [Suspect]
     Active Substance: DEXAMETHASONE
     Indication: Migraine
     Dosage: 1 ML OF 4MG/ML CONCENTRATION
     Route: 065
     Dates: start: 2023
  15. DEXAMETHASONE [Suspect]
     Active Substance: DEXAMETHASONE
     Indication: Migraine
     Dosage: TIME INTERVAL: 0.33333333 DAYS: 3 TIMES PER DAY
     Route: 065
     Dates: start: 202301
  16. SUMATRIPTAN [Concomitant]
     Active Substance: SUMATRIPTAN
     Indication: Migraine
     Route: 065
  17. PROCHLORPERAZINE [Suspect]
     Active Substance: PROCHLORPERAZINE
     Indication: Migraine
     Route: 065
     Dates: start: 2023
  18. ACETAMINOPHEN [Suspect]
     Active Substance: ACETAMINOPHEN
     Indication: Migraine
     Route: 065
     Dates: start: 2023
  19. ACETAMINOPHEN [Suspect]
     Active Substance: ACETAMINOPHEN
     Indication: Migraine
     Route: 065
  20. BUPIVACAINE [Suspect]
     Active Substance: BUPIVACAINE
     Indication: Nerve block
     Route: 065

REACTIONS (2)
  - Treatment failure [Unknown]
  - Herpes simplex reactivation [Recovering/Resolving]

NARRATIVE: CASE EVENT DATE: 20230101
